APPROVED DRUG PRODUCT: ORPHENADRINE CITRATE, ASPIRIN, AND CAFFEINE
Active Ingredient: ASPIRIN; CAFFEINE; ORPHENADRINE CITRATE
Strength: 385MG;30MG;25MG
Dosage Form/Route: TABLET;ORAL
Application: A074988 | Product #001
Applicant: JEROME STEVENS PHARMACEUTICALS INC
Approved: Apr 30, 1999 | RLD: No | RS: No | Type: DISCN